FAERS Safety Report 21687341 (Version 10)
Quarter: 2023Q1

REPORT INFORMATION
  Report Type: Report from Study
  Country: US (occurrence: US)
  Receive Date: 20221206
  Receipt Date: 20230324
  Transmission Date: 20230418
  Serious: No
  Sender: FDA-Public Use
  Company Number: US-002147023-NVSC2022US278117

PATIENT
  Sex: Female

DRUGS (3)
  1. KESIMPTA [Suspect]
     Active Substance: OFATUMUMAB
     Indication: Relapsing multiple sclerosis
     Dosage: 20 MG/KG, Q4W
     Route: 058
     Dates: start: 20220925
  2. KESIMPTA [Suspect]
     Active Substance: OFATUMUMAB
     Dosage: UNK, QMO (20 MILIGRAM//KILOGRAM)
     Route: 065
  3. AUBAGIO [Suspect]
     Active Substance: TERIFLUNOMIDE
     Indication: Multiple sclerosis
     Dosage: 14 MG, QD
     Route: 048
     Dates: start: 20220201

REACTIONS (8)
  - Fibromyalgia [Unknown]
  - Pain [Unknown]
  - Fatigue [Unknown]
  - Neck pain [Unknown]
  - Fall [Unknown]
  - Condition aggravated [Unknown]
  - Back pain [Unknown]
  - Musculoskeletal discomfort [Unknown]

NARRATIVE: CASE EVENT DATE: 20220101
